FAERS Safety Report 23768732 (Version 3)
Quarter: 2024Q2

REPORT INFORMATION
  Report Type: Spontaneous
  Country: GB (occurrence: GB)
  Receive Date: 20240422
  Receipt Date: 20240603
  Transmission Date: 20240715
  Serious: Yes (Hospitalization)
  Sender: FDA-Public Use
  Company Number: GB-MYLANLABS-2024M1036139

PATIENT
  Sex: Female
  Weight: 51.1 kg

DRUGS (3)
  1. CLOZARIL [Suspect]
     Active Substance: CLOZAPINE
     Indication: Schizophrenia
     Dosage: 225 MILLIGRAM, QD (ONCE DAILY)
     Route: 048
     Dates: start: 20200629, end: 20240414
  2. CLOZARIL [Suspect]
     Active Substance: CLOZAPINE
     Dosage: UNK (DOSE DECREASED)
     Route: 048
     Dates: start: 202404
  3. CLOZARIL [Suspect]
     Active Substance: CLOZAPINE
     Dosage: UNK (DOSE INCREASED HIGHER THAN THE PREVIOUS 225MG DOSE)
     Route: 048

REACTIONS (2)
  - Schizophrenia [Recovering/Resolving]
  - Therapy interrupted [Unknown]

NARRATIVE: CASE EVENT DATE: 20240413
